FAERS Safety Report 7201239-2 (Version None)
Quarter: 2010Q4

REPORT INFORMATION
  Report Type: 
  Country: None (occurrence: None)
  Receive Date: 20101227
  Receipt Date: 20101227
  Transmission Date: 20110411
  Serious: Yes (Hospitalization)
  Sender: FDA-Public Use
  Company Number: None

PATIENT
  Age: 34 Year
  Sex: Female
  Weight: 109.3169 kg

DRUGS (1)
  1. SULFAMETHOXAZOLE AND TRIMETHOPRIM [Suspect]
     Indication: FURUNCLE
     Dosage: 1 TABLET TWICE DAILY PO (TOOK ONE TABLET)
     Route: 048
     Dates: start: 20101223, end: 20101223

REACTIONS (1)
  - CEREBROVASCULAR ACCIDENT [None]
